FAERS Safety Report 24748729 (Version 2)
Quarter: 2024Q4

REPORT INFORMATION
  Report Type: Spontaneous
  Country: CN (occurrence: CN)
  Receive Date: 20241218
  Receipt Date: 20241223
  Transmission Date: 20250115
  Serious: Yes (Other)
  Sender: PFIZER
  Company Number: CN-PFIZER INC-PV202400139131

PATIENT
  Age: 41 Year
  Sex: Female

DRUGS (1)
  1. CRIZOTINIB [Suspect]
     Active Substance: CRIZOTINIB
     Dosage: 250 MG, 2X/DAY
     Route: 048

REACTIONS (7)
  - Pneumonia [Unknown]
  - Lymphangitis [Unknown]
  - Diabetes mellitus [Unknown]
  - Pericardial effusion [Recovering/Resolving]
  - Hepatic function abnormal [Unknown]
  - White matter lesion [Unknown]
  - Neoplasm progression [Unknown]

NARRATIVE: CASE EVENT DATE: 20240726
